FAERS Safety Report 7428024-0 (Version None)
Quarter: 2011Q2

REPORT INFORMATION
  Report Type: 
  Country: None (occurrence: None)
  Receive Date: 20110421
  Receipt Date: 20110411
  Transmission Date: 20111010
  Serious: Yes (Hospitalization)
  Sender: FDA-Public Use
  Company Number: US-BIOGENIDEC-2010BI035911

PATIENT
  Age: 36 Year
  Sex: Male

DRUGS (10)
  1. GABAPENTINE [Concomitant]
     Route: 048
  2. LEXAPRO [Concomitant]
     Route: 048
  3. FLEXERIL [Concomitant]
     Route: 048
  4. VITAMIN D [Concomitant]
     Indication: VITAMIN D DEFICIENCY
  5. OXYCONTIN [Concomitant]
     Indication: MULTIPLE SCLEROSIS
  6. COLACE [Concomitant]
  7. LORAZEPAM [Concomitant]
  8. TYSABRI [Suspect]
     Indication: MULTIPLE SCLEROSIS
     Route: 042
     Dates: start: 20100927, end: 20101010
  9. OMEPRAZOLE [Concomitant]
     Route: 048
  10. LUNESTA [Concomitant]

REACTIONS (2)
  - MYOSITIS [None]
  - LOSS OF CONTROL OF LEGS [None]
